FAERS Safety Report 4733136-6 (Version None)
Quarter: 2005Q3

REPORT INFORMATION
  Report Type: 
  Country: None (occurrence: None)
  Receive Date: 20050729
  Receipt Date: 20050719
  Transmission Date: 20060218
  Serious: Yes (Hospitalization)
  Sender: FDA-Public Use
  Company Number: 11885

PATIENT
  Age: 68 Year
  Sex: Female

DRUGS (15)
  1. FLUOROURACIL [Suspect]
     Indication: BILIARY NEOPLASM
     Dosage: 375 MG/M2, IV
     Route: 042
     Dates: start: 20050620
  2. LEUCOVORIN [Suspect]
     Indication: BILIARY NEOPLASM
     Dosage: 25 MG/M2 IV
     Route: 042
     Dates: start: 20050620
  3. IRBESARTAN [Concomitant]
  4. PANTOPRAZOLE [Concomitant]
  5. OMEPRAZOLE [Concomitant]
  6. MORPHINE SULFATE [Concomitant]
  7. MIRTAZAPINE [Concomitant]
  8. ALPRAZOLAM [Concomitant]
  9. ZOLPIDEM TARTRATE [Concomitant]
  10. METOCLOPRAMIDE [Concomitant]
  11. EPOETIN BETA [Concomitant]
  12. PIROXICAM [Concomitant]
  13. FENTANYL [Concomitant]
  14. LACTULOSE [Concomitant]
  15. SODIUM CHLORIDE [Concomitant]

REACTIONS (2)
  - MUCOSAL INFLAMMATION [None]
  - STOMATITIS [None]
